FAERS Safety Report 19677490 (Version 19)
Quarter: 2022Q3

REPORT INFORMATION
  Report Type: Report from Study
  Country: CN (occurrence: None)
  Receive Date: 20210810
  Receipt Date: 20220817
  Transmission Date: 20221027
  Serious: Yes (Death, Hospitalization)
  Sender: FDA-Public Use
  Company Number: CN-ROCHE-2848877

PATIENT
  Age: 67 Year
  Sex: Female
  Weight: 48 kg

DRUGS (166)
  1. TIRAGOLUMAB [Suspect]
     Active Substance: TIRAGOLUMAB
     Indication: Oesophageal squamous cell carcinoma metastatic
     Dosage: ON 31/MAY/2021 SHE RECEIVED THE MOST RECENT DOSE OF BLINDED TIRAGOLUMAB,
     Route: 042
     Dates: start: 20210531
  2. ATEZOLIZUMAB [Suspect]
     Active Substance: ATEZOLIZUMAB
     Indication: Oesophageal squamous cell carcinoma metastatic
     Dosage: ON 31/MAY/2021 SHE RECEIVED THE MOST RECENT DOSE OF BLINDED ATEZOLIZUMAB.
     Route: 041
     Dates: start: 20210531
  3. CISPLATIN [Suspect]
     Active Substance: CISPLATIN
     Indication: Oesophageal squamous cell carcinoma metastatic
     Dosage: ON 31/MAY/2021 SHE RECEIVED THE MOST RECENT DOSE (90 MG) OF CISPLATIN PRIOR TO AE
     Route: 042
     Dates: start: 20210531
  4. PACLITAXEL [Suspect]
     Active Substance: PACLITAXEL
     Indication: Oesophageal squamous cell carcinoma metastatic
     Dosage: ON 31/MAY/2021 SHE RECEIVED THE MOST RECENT DOSE OF BLINDED PACLITAXEL,
     Route: 042
     Dates: start: 20210531
  5. MEGESTROL [Concomitant]
     Active Substance: MEGESTROL
     Dates: start: 20210625, end: 20210715
  6. ETHAMSYLATE [Concomitant]
     Active Substance: ETHAMSYLATE
     Indication: Haemostasis
     Dates: start: 20210630, end: 20210711
  7. SAMMY [Concomitant]
     Dates: start: 20210531, end: 20210531
  8. SAMMY [Concomitant]
     Dates: start: 20210711, end: 20210711
  9. SAMMY [Concomitant]
     Dates: start: 20210624, end: 20210624
  10. SAMMY [Concomitant]
     Dates: start: 20210623, end: 20210623
  11. SAMMY [Concomitant]
     Dates: start: 20210619, end: 20210619
  12. SAMMY [Concomitant]
     Dates: start: 20210617, end: 20210617
  13. SAMMY [Concomitant]
     Dates: start: 20210702, end: 20210712
  14. SAMMY [Concomitant]
     Dates: start: 20210701, end: 20210701
  15. DEXAMETHASONE SODIUM PHOSPHATE [Concomitant]
     Active Substance: DEXAMETHASONE SODIUM PHOSPHATE
     Route: 042
     Dates: start: 20210531, end: 20210531
  16. DEXAMETHASONE SODIUM PHOSPHATE [Concomitant]
     Active Substance: DEXAMETHASONE SODIUM PHOSPHATE
     Route: 042
     Dates: start: 20210531, end: 20210531
  17. DEXAMETHASONE SODIUM PHOSPHATE [Concomitant]
     Active Substance: DEXAMETHASONE SODIUM PHOSPHATE
     Route: 058
     Dates: start: 20210716, end: 20210716
  18. DEXAMETHASONE SODIUM PHOSPHATE [Concomitant]
     Active Substance: DEXAMETHASONE SODIUM PHOSPHATE
     Route: 042
     Dates: start: 20210626, end: 20210626
  19. DEXAMETHASONE SODIUM PHOSPHATE [Concomitant]
     Active Substance: DEXAMETHASONE SODIUM PHOSPHATE
     Route: 042
     Dates: start: 20210531, end: 20210531
  20. DEXAMETHASONE SODIUM PHOSPHATE [Concomitant]
     Active Substance: DEXAMETHASONE SODIUM PHOSPHATE
     Route: 042
     Dates: start: 20210705, end: 20210705
  21. DEXAMETHASONE SODIUM PHOSPHATE [Concomitant]
     Active Substance: DEXAMETHASONE SODIUM PHOSPHATE
     Route: 042
     Dates: start: 20210701, end: 20210701
  22. DEXAMETHASONE SODIUM PHOSPHATE [Concomitant]
     Active Substance: DEXAMETHASONE SODIUM PHOSPHATE
     Route: 042
     Dates: start: 20210629, end: 20210630
  23. DEXAMETHASONE SODIUM PHOSPHATE [Concomitant]
     Active Substance: DEXAMETHASONE SODIUM PHOSPHATE
     Route: 042
     Dates: start: 20210630, end: 20210701
  24. CEFOPERAZONE\SULBACTAM SODIUM [Concomitant]
     Active Substance: CEFOPERAZONE\SULBACTAM SODIUM
     Route: 042
     Dates: start: 20210613, end: 20210706
  25. CEFOPERAZONE\SULBACTAM SODIUM [Concomitant]
     Active Substance: CEFOPERAZONE\SULBACTAM SODIUM
     Dates: start: 20210718, end: 20210720
  26. AMBROXOL HYDROCHLORIDE [Concomitant]
     Active Substance: AMBROXOL HYDROCHLORIDE
     Dosage: REDUCE PHLEGM
     Route: 042
     Dates: start: 20210613, end: 20210720
  27. AMBROXOL HYDROCHLORIDE [Concomitant]
     Active Substance: AMBROXOL HYDROCHLORIDE
     Route: 042
     Dates: start: 20210613, end: 20210613
  28. AMBROXOL HYDROCHLORIDE [Concomitant]
     Active Substance: AMBROXOL HYDROCHLORIDE
     Route: 042
     Dates: start: 20210615, end: 20210615
  29. DOXOFYLLINE [Concomitant]
     Active Substance: DOXOFYLLINE
     Indication: Cough
     Route: 042
     Dates: start: 20210613, end: 20210616
  30. DOXOFYLLINE [Concomitant]
     Active Substance: DOXOFYLLINE
     Indication: Wheezing
     Route: 042
     Dates: start: 20210720, end: 20210720
  31. DEXTROSE [Concomitant]
     Active Substance: DEXTROSE
     Dates: start: 20210613, end: 20210623
  32. DEXTROSE [Concomitant]
     Active Substance: DEXTROSE
     Dates: start: 20210612, end: 20210612
  33. DEXTROSE [Concomitant]
     Active Substance: DEXTROSE
     Dates: start: 20210611, end: 20210613
  34. DEXTROSE [Concomitant]
     Active Substance: DEXTROSE
     Dates: start: 20210614, end: 20210614
  35. DEXTROSE [Concomitant]
     Active Substance: DEXTROSE
     Dates: start: 20210701, end: 20210701
  36. DEXTROSE [Concomitant]
     Active Substance: DEXTROSE
     Dates: start: 20210514, end: 20210531
  37. VITAMIN C [Concomitant]
     Active Substance: ASCORBIC ACID
     Dates: start: 20210613, end: 20210623
  38. VITAMIN C [Concomitant]
     Active Substance: ASCORBIC ACID
     Dates: start: 20210714, end: 20210714
  39. VITAMIN B6 [Concomitant]
     Active Substance: PYRIDOXINE HYDROCHLORIDE
     Dates: start: 20210613, end: 20210623
  40. VITAMIN B6 [Concomitant]
     Active Substance: PYRIDOXINE HYDROCHLORIDE
     Dates: start: 20210714, end: 20210714
  41. ACETYLCYSTEINE [Concomitant]
     Active Substance: ACETYLCYSTEINE
     Route: 055
     Dates: start: 20210613, end: 20210624
  42. SULFAMETHOXAZOLE [Concomitant]
     Active Substance: SULFAMETHOXAZOLE
     Route: 048
     Dates: start: 20210613, end: 20210701
  43. POTASSIUM CHLORIDE [Concomitant]
     Active Substance: POTASSIUM CHLORIDE
     Indication: Hypokalaemia
     Route: 042
     Dates: start: 20210615, end: 20210623
  44. POTASSIUM CHLORIDE [Concomitant]
     Active Substance: POTASSIUM CHLORIDE
     Dates: start: 20210514, end: 20210531
  45. POTASSIUM CHLORIDE [Concomitant]
     Active Substance: POTASSIUM CHLORIDE
     Route: 048
     Dates: start: 20210630, end: 20210701
  46. POTASSIUM CHLORIDE [Concomitant]
     Active Substance: POTASSIUM CHLORIDE
     Route: 048
     Dates: start: 20210619, end: 20210627
  47. POTASSIUM CHLORIDE [Concomitant]
     Active Substance: POTASSIUM CHLORIDE
     Route: 042
     Dates: start: 20210611, end: 20210613
  48. POTASSIUM CHLORIDE [Concomitant]
     Active Substance: POTASSIUM CHLORIDE
     Route: 042
     Dates: start: 20210613, end: 20210613
  49. POTASSIUM CHLORIDE [Concomitant]
     Active Substance: POTASSIUM CHLORIDE
     Route: 042
     Dates: start: 20210614, end: 20210614
  50. POTASSIUM CHLORIDE [Concomitant]
     Active Substance: POTASSIUM CHLORIDE
     Route: 042
     Dates: start: 20210615, end: 20210616
  51. POTASSIUM CHLORIDE [Concomitant]
     Active Substance: POTASSIUM CHLORIDE
     Route: 042
     Dates: start: 20210615, end: 20210615
  52. POTASSIUM CHLORIDE [Concomitant]
     Active Substance: POTASSIUM CHLORIDE
     Dates: start: 20210701, end: 20210701
  53. POTASSIUM CHLORIDE [Concomitant]
     Active Substance: POTASSIUM CHLORIDE
     Dosage: ONGOING NO
     Dates: start: 20210515, end: 20210528
  54. POTASSIUM CHLORIDE [Concomitant]
     Active Substance: POTASSIUM CHLORIDE
     Dosage: ONGOING NO?GIVEN FOR PROPHYLAXIS YES
     Dates: start: 20210529, end: 20210607
  55. POTASSIUM CHLORIDE [Concomitant]
     Active Substance: POTASSIUM CHLORIDE
     Dosage: ONGOING NO?GIVEN FOR PROPHYLAXIS YES
     Route: 042
     Dates: start: 20210604, end: 20210607
  56. POTASSIUM CHLORIDE [Concomitant]
     Active Substance: POTASSIUM CHLORIDE
     Dosage: ONGOING NO
     Route: 042
     Dates: start: 20210608, end: 20210608
  57. POTASSIUM CHLORIDE [Concomitant]
     Active Substance: POTASSIUM CHLORIDE
     Route: 042
     Dates: start: 20210620, end: 20210623
  58. THROMBIN [Concomitant]
     Active Substance: THROMBIN
     Indication: Haemostasis
     Route: 048
     Dates: start: 20210616, end: 20210715
  59. THROMBIN [Concomitant]
     Active Substance: THROMBIN
     Route: 048
     Dates: start: 20210616, end: 20210715
  60. FUROSEMIDE [Concomitant]
     Active Substance: FUROSEMIDE
     Dates: start: 20210620, end: 20210625
  61. FUROSEMIDE [Concomitant]
     Active Substance: FUROSEMIDE
     Dates: start: 20210625, end: 20210629
  62. FUROSEMIDE [Concomitant]
     Active Substance: FUROSEMIDE
     Dates: start: 20210630, end: 20210710
  63. FUROSEMIDE [Concomitant]
     Active Substance: FUROSEMIDE
     Dates: start: 20210720, end: 20210720
  64. FUROSEMIDE [Concomitant]
     Active Substance: FUROSEMIDE
     Dates: start: 20210613, end: 20210613
  65. FUROSEMIDE [Concomitant]
     Active Substance: FUROSEMIDE
     Dates: start: 20210619, end: 20210706
  66. FUROSEMIDE [Concomitant]
     Active Substance: FUROSEMIDE
     Dates: start: 20210531, end: 20210531
  67. FUROSEMIDE [Concomitant]
     Active Substance: FUROSEMIDE
     Dates: start: 20210617, end: 20210617
  68. FUROSEMIDE [Concomitant]
     Active Substance: FUROSEMIDE
     Dates: start: 20210708, end: 20210708
  69. FERROUS SUCCINATE [Concomitant]
     Active Substance: FERROUS SUCCINATE
     Indication: Anaemia
     Route: 048
     Dates: start: 20210621, end: 20210701
  70. METHYLCOBALAMIN [Concomitant]
     Active Substance: METHYLCOBALAMIN
     Dates: start: 20210621, end: 20210626
  71. THYMUS GLAND [Concomitant]
     Dates: start: 20210623, end: 20210720
  72. ALBUMIN HUMAN [Concomitant]
     Active Substance: ALBUMIN HUMAN
     Indication: Hypoalbuminaemia
     Dates: start: 20210625
  73. ALBUMIN HUMAN [Concomitant]
     Active Substance: ALBUMIN HUMAN
     Indication: Hypoproteinaemia
     Dates: start: 20210630, end: 20210710
  74. ALBUMIN HUMAN [Concomitant]
     Active Substance: ALBUMIN HUMAN
     Dates: start: 20210718, end: 20210720
  75. SODIUM CHLORIDE [Concomitant]
     Active Substance: SODIUM CHLORIDE
     Indication: Hyponatraemia
     Dates: start: 20210627, end: 20210630
  76. SODIUM CHLORIDE [Concomitant]
     Active Substance: SODIUM CHLORIDE
     Dates: start: 20210630, end: 20210705
  77. SODIUM CHLORIDE [Concomitant]
     Active Substance: SODIUM CHLORIDE
     Route: 042
     Dates: start: 20210613, end: 20210613
  78. SODIUM CHLORIDE [Concomitant]
     Active Substance: SODIUM CHLORIDE
     Dosage: NEEDLE
     Route: 042
     Dates: start: 20210611, end: 20210613
  79. SODIUM CHLORIDE [Concomitant]
     Active Substance: SODIUM CHLORIDE
     Route: 042
     Dates: start: 20210712, end: 20210712
  80. SODIUM CHLORIDE [Concomitant]
     Active Substance: SODIUM CHLORIDE
     Route: 042
     Dates: start: 20210618, end: 20210625
  81. SODIUM CHLORIDE [Concomitant]
     Active Substance: SODIUM CHLORIDE
     Dates: start: 20210613, end: 20210613
  82. SODIUM CHLORIDE [Concomitant]
     Active Substance: SODIUM CHLORIDE
     Route: 042
     Dates: start: 20210614, end: 20210615
  83. SODIUM CHLORIDE [Concomitant]
     Active Substance: SODIUM CHLORIDE
     Dates: start: 20210627, end: 20210627
  84. SODIUM CHLORIDE [Concomitant]
     Active Substance: SODIUM CHLORIDE
     Dosage: ONGOING NO
     Dates: start: 20210514, end: 20210528
  85. SODIUM CHLORIDE [Concomitant]
     Active Substance: SODIUM CHLORIDE
     Dosage: ONGOING NO?GIVEN FOR PROPHYLAXIS YES
     Dates: start: 20210529, end: 20210531
  86. SODIUM CHLORIDE [Concomitant]
     Active Substance: SODIUM CHLORIDE
     Dosage: ONGOING NO?GIVEN FOR PROPHYLAXIS YES
     Dates: start: 20210604, end: 20210607
  87. SODIUM CHLORIDE [Concomitant]
     Active Substance: SODIUM CHLORIDE
     Dosage: ONGOING NO
     Route: 042
     Dates: start: 20210608, end: 20210608
  88. SODIUM CHLORIDE [Concomitant]
     Active Substance: SODIUM CHLORIDE
     Route: 042
     Dates: start: 20210604, end: 20210608
  89. SODIUM CHLORIDE [Concomitant]
     Active Substance: SODIUM CHLORIDE
     Route: 042
     Dates: start: 20210627, end: 20210705
  90. SPIRONOLACTONE [Concomitant]
     Active Substance: SPIRONOLACTONE
     Indication: Polyuria
     Dates: start: 20210628, end: 20210630
  91. GLUTATHIONE [Concomitant]
     Active Substance: GLUTATHIONE
     Route: 042
     Dates: start: 20210629, end: 20210707
  92. METHYLCOBALAMIN [Concomitant]
     Active Substance: METHYLCOBALAMIN
     Dates: start: 20210630, end: 20210701
  93. BISOPROLOL [Concomitant]
     Active Substance: BISOPROLOL
     Dates: start: 20210701, end: 20210720
  94. TIGECYCLINE [Concomitant]
     Active Substance: TIGECYCLINE
     Dates: start: 20210718, end: 20210718
  95. TIGECYCLINE [Concomitant]
     Active Substance: TIGECYCLINE
     Dates: start: 20210719, end: 20210719
  96. TIGECYCLINE [Concomitant]
     Active Substance: TIGECYCLINE
     Dates: start: 20210719, end: 20210720
  97. DOXOFYLLINE [Concomitant]
     Active Substance: DOXOFYLLINE
     Indication: Asthma
     Route: 042
     Dates: start: 20210720, end: 20210720
  98. DOXOFYLLINE [Concomitant]
     Active Substance: DOXOFYLLINE
     Route: 042
     Dates: start: 20210613, end: 20210616
  99. INSULIN NOS [Concomitant]
     Active Substance: INSULIN NOS
     Indication: Hyperglycaemia
     Dates: start: 20210514, end: 20210531
  100. INSULIN NOS [Concomitant]
     Active Substance: INSULIN NOS
     Dosage: ONGOING NO
     Dates: start: 20210618, end: 20210624
  101. INSULIN NOS [Concomitant]
     Active Substance: INSULIN NOS
     Dates: start: 20210611, end: 20210613
  102. INSULIN NOS [Concomitant]
     Active Substance: INSULIN NOS
     Dosage: ONGOING NO
     Dates: start: 20210626, end: 20210704
  103. INSULIN NOS [Concomitant]
     Active Substance: INSULIN NOS
     Dosage: ONGOING NO
     Dates: start: 20210706, end: 20210706
  104. INSULIN NOS [Concomitant]
     Active Substance: INSULIN NOS
     Dosage: ONGOING NO
     Dates: start: 20210709, end: 20210710
  105. INSULIN NOS [Concomitant]
     Active Substance: INSULIN NOS
     Dosage: ONGOING NO
     Dates: start: 20210714, end: 20210715
  106. INSULIN NOS [Concomitant]
     Active Substance: INSULIN NOS
     Dosage: ONGOING NO
     Dates: start: 20210717, end: 20210717
  107. INSULIN NOS [Concomitant]
     Active Substance: INSULIN NOS
     Dosage: ONGOING NO
     Dates: start: 20210604, end: 20210608
  108. THROMBOPOIETIN [Concomitant]
     Active Substance: THROMBOPOIETIN
     Route: 058
     Dates: start: 20210624, end: 20210707
  109. THROMBOPOIETIN [Concomitant]
     Active Substance: THROMBOPOIETIN
     Route: 058
     Dates: start: 20210712, end: 20210720
  110. THROMBOPOIETIN [Concomitant]
     Active Substance: THROMBOPOIETIN
     Route: 058
     Dates: start: 20210621, end: 20210621
  111. THROMBOPOIETIN [Concomitant]
     Active Substance: THROMBOPOIETIN
     Route: 058
     Dates: start: 20210619, end: 20210707
  112. AMINO ACIDS, SOURCE UNSPECIFIED [Concomitant]
     Active Substance: AMINO ACIDS, SOURCE UNSPECIFIED
     Dates: start: 20210718, end: 20210720
  113. AMINO ACIDS, SOURCE UNSPECIFIED [Concomitant]
     Active Substance: AMINO ACIDS, SOURCE UNSPECIFIED
     Dates: start: 20210514, end: 20210531
  114. OPRELVEKIN [Concomitant]
     Active Substance: OPRELVEKIN
     Route: 058
     Dates: start: 20210619, end: 20210707
  115. SULFAMETHOXAZOLE [Concomitant]
     Active Substance: SULFAMETHOXAZOLE
     Route: 048
     Dates: start: 20210613, end: 20210701
  116. CYSTEINE\GLYCINE\GLYCYRRHIZIN [Concomitant]
     Active Substance: CYSTEINE\GLYCINE\GLYCYRRHIZIN
     Route: 042
     Dates: start: 20210701, end: 20210707
  117. BUDESONIDE [Concomitant]
     Active Substance: BUDESONIDE
     Route: 055
     Dates: start: 20210715, end: 20210720
  118. BUDESONIDE [Concomitant]
     Active Substance: BUDESONIDE
     Dosage: SUSPENSION
     Route: 055
     Dates: start: 20210612, end: 20210613
  119. BUDESONIDE [Concomitant]
     Active Substance: BUDESONIDE
     Route: 055
     Dates: start: 20210715, end: 20210715
  120. TERBUTALINE [Concomitant]
     Active Substance: TERBUTALINE
     Route: 055
     Dates: start: 20210715, end: 20210720
  121. TERBUTALINE [Concomitant]
     Active Substance: TERBUTALINE
     Route: 055
     Dates: start: 20210715, end: 20210715
  122. COMPOUND AMINO ACID (18AA-I) [Concomitant]
     Dates: start: 20210613, end: 20210613
  123. COMPOUND AMINO ACID (18AA-I) [Concomitant]
     Dates: start: 20210611, end: 20210613
  124. COMPOUND AMINO ACID (18AA-I) [Concomitant]
     Dosage: ONGOING NO?GIVEN FOR PROPHYLAXIS YES
     Dates: start: 20210602, end: 20210608
  125. DOPAMINE [Concomitant]
     Active Substance: DOPAMINE HYDROCHLORIDE
     Indication: Blood pressure increased
     Dates: start: 20210617, end: 20210617
  126. DOPAMINE [Concomitant]
     Active Substance: DOPAMINE HYDROCHLORIDE
     Dates: start: 20210702, end: 20210712
  127. DOPAMINE [Concomitant]
     Active Substance: DOPAMINE HYDROCHLORIDE
     Dates: start: 20210704, end: 20210704
  128. DOPAMINE [Concomitant]
     Active Substance: DOPAMINE HYDROCHLORIDE
     Dates: start: 20210707, end: 20210707
  129. DOPAMINE [Concomitant]
     Active Substance: DOPAMINE HYDROCHLORIDE
     Dates: start: 20210709, end: 20210709
  130. DOPAMINE [Concomitant]
     Active Substance: DOPAMINE HYDROCHLORIDE
     Dates: start: 20210711, end: 20210711
  131. RECOMBINANT HUMAN GRANULOCYTE STIMULATING FACTOR (UNK INGREDIENTS) [Concomitant]
     Dates: start: 20210709, end: 20210709
  132. RECOMBINANT HUMAN GRANULOCYTE STIMULATING FACTOR (UNK INGREDIENTS) [Concomitant]
     Dates: start: 20210716, end: 20210716
  133. RECOMBINANT HUMAN GRANULOCYTE STIMULATING FACTOR (UNK INGREDIENTS) [Concomitant]
     Dates: start: 20210714, end: 20210714
  134. OMEPRAZOLE [Concomitant]
     Active Substance: OMEPRAZOLE
     Route: 042
     Dates: start: 20210611, end: 20210613
  135. OMEPRAZOLE [Concomitant]
     Active Substance: OMEPRAZOLE
     Dates: start: 20210616, end: 20210626
  136. OMEPRAZOLE [Concomitant]
     Active Substance: OMEPRAZOLE
     Dates: start: 20210611, end: 20210626
  137. HEPARIN CALCIUM [Concomitant]
     Active Substance: HEPARIN CALCIUM
     Dates: start: 20210611, end: 20210612
  138. ALBUMIN HUMAN [Concomitant]
     Active Substance: ALBUMIN HUMAN
     Indication: Protein total decreased
     Dates: start: 20210613, end: 20210613
  139. ALBUMIN HUMAN [Concomitant]
     Active Substance: ALBUMIN HUMAN
     Route: 042
     Dates: start: 20210613, end: 20210625
  140. ALBUMIN HUMAN [Concomitant]
     Active Substance: ALBUMIN HUMAN
     Dates: start: 20210625, end: 20210630
  141. CEFUROXIME [Concomitant]
     Active Substance: CEFUROXIME
     Dosage: POWDER NEEDLE
     Route: 042
     Dates: start: 20210613, end: 20210613
  142. IPRATROPIUM BROMIDE [Concomitant]
     Active Substance: IPRATROPIUM BROMIDE
     Route: 055
     Dates: start: 20210715, end: 20210720
  143. IPRATROPIUM BROMIDE [Concomitant]
     Active Substance: IPRATROPIUM BROMIDE
     Route: 055
     Dates: start: 20210715, end: 20210715
  144. PLATELETS [Concomitant]
     Active Substance: HUMAN PLATELET, ALLOGENIC
     Indication: Platelet count decreased
     Dosage: 1 OTHER
     Route: 042
     Dates: start: 20210626, end: 20210626
  145. PLATELETS [Concomitant]
     Active Substance: HUMAN PLATELET, ALLOGENIC
     Dosage: 1 OTHER
     Route: 042
     Dates: start: 20210621, end: 20210621
  146. PLATELETS [Concomitant]
     Active Substance: HUMAN PLATELET, ALLOGENIC
     Dates: start: 20210701, end: 20210701
  147. DIPHENHYDRAMINE [Concomitant]
     Active Substance: DIPHENHYDRAMINE
     Indication: Prophylaxis
     Dates: start: 20210621, end: 20210621
  148. DIPHENHYDRAMINE [Concomitant]
     Active Substance: DIPHENHYDRAMINE
     Dates: start: 20210615, end: 20210617
  149. DIPHENHYDRAMINE [Concomitant]
     Active Substance: DIPHENHYDRAMINE
     Dates: start: 20210703, end: 20210703
  150. UROKINASE [Concomitant]
     Active Substance: UROKINASE
     Indication: Haemorrhage
     Route: 065
     Dates: start: 20210621, end: 20210621
  151. HUMAN PLASMA [Concomitant]
     Active Substance: HUMAN PLASMA
     Indication: Anaemia
     Route: 042
     Dates: start: 20210616, end: 20210617
  152. HUMAN RED BLOOD CELL [Concomitant]
     Active Substance: HUMAN RED BLOOD CELL
     Indication: Anaemia
     Dosage: 2 U
     Route: 042
     Dates: start: 20210615, end: 20210617
  153. HUMAN RED BLOOD CELL [Concomitant]
     Active Substance: HUMAN RED BLOOD CELL
     Dosage: 4 U
     Route: 042
     Dates: start: 20210703, end: 20210703
  154. HUMAN RED BLOOD CELL [Concomitant]
     Active Substance: HUMAN RED BLOOD CELL
     Dosage: 2 U
     Dates: start: 20210629, end: 20210630
  155. MAGNESIUM SULFATE [Concomitant]
     Active Substance: MAGNESIUM SULFATE
     Indication: Prophylaxis
     Dates: start: 20210701, end: 20210701
  156. MAGNESIUM SULFATE [Concomitant]
     Active Substance: MAGNESIUM SULFATE
     Dosage: ONGOING NO?GIVEN FOR PROPHYLAXIS YES
     Dates: start: 20210615, end: 20210615
  157. CASTOR OIL [Concomitant]
     Active Substance: CASTOR OIL
     Dates: start: 20210701, end: 20210701
  158. COMPOUND CHLORHEXIDINE (UNK INGREDIENTS) [Concomitant]
     Dates: start: 20210613, end: 20210621
  159. TRAMADOL HYDROCHLORIDE [Concomitant]
     Active Substance: TRAMADOL HYDROCHLORIDE
     Indication: Abdominal pain upper
     Dates: start: 20210608, end: 20210720
  160. NYSTATIN [Concomitant]
     Active Substance: NYSTATIN
     Dosage: ONGOING YES?GIVEN FOR PROPHYLAXIS YES
     Dates: start: 20210630
  161. FAT EMULSION INJECTION (C14-24) [Concomitant]
     Dates: start: 20210602, end: 20210608
  162. IBUPROFEN [Concomitant]
     Active Substance: IBUPROFEN
     Dosage: ONGOING NO
     Route: 048
     Dates: start: 20210628, end: 20210628
  163. PHENETHYLAMINE [Concomitant]
     Active Substance: PHENETHYLAMINE
     Indication: Haemostasis
     Route: 042
     Dates: start: 20210630, end: 20210711
  164. PLATELETS [Concomitant]
     Active Substance: HUMAN PLATELET, ALLOGENIC
     Indication: Immune thrombocytopenia
     Dates: start: 20210619, end: 20210619
  165. PLATELETS [Concomitant]
     Active Substance: HUMAN PLATELET, ALLOGENIC
     Dates: start: 20210623, end: 20210623
  166. PLATELETS [Concomitant]
     Active Substance: HUMAN PLATELET, ALLOGENIC
     Route: 042
     Dates: start: 20210701, end: 20210701

REACTIONS (2)
  - Pneumonitis [Fatal]
  - Nausea [Recovered/Resolved]

NARRATIVE: CASE EVENT DATE: 20210611
